FAERS Safety Report 6949429-8 (Version None)
Quarter: 2010Q3

REPORT INFORMATION
  Report Type: 
  Country: None (occurrence: None)
  Receive Date: 20100828
  Receipt Date: 20091222
  Transmission Date: 20110219
  Serious: No
  Sender: FDA-Public Use
  Company Number: US-ABBOTT-09P-163-0616733-00

PATIENT

DRUGS (17)
  1. NIASPAN [Suspect]
     Indication: BLOOD CHOLESTEROL INCREASED
     Dates: start: 20070101, end: 20090701
  2. NIASPAN [Suspect]
     Dates: start: 20090801, end: 20090901
  3. NIASPAN [Suspect]
     Dates: end: 20091208
  4. VITAMIN B [Suspect]
     Indication: VITAMIN SUPPLEMENTATION
     Dates: end: 20090701
  5. VITAMIN B [Suspect]
     Dates: start: 20090801, end: 20090901
  6. VITAMIN B [Suspect]
     Dosage: UNKNOWN
     Dates: end: 20091201
  7. DICLOFENAC [Concomitant]
     Indication: PAIN
     Dates: end: 20090701
  8. DICLOFENAC [Concomitant]
     Dates: start: 20090801, end: 20090901
  9. DICLOFENAC [Concomitant]
     Dates: end: 20091201
  10. LIPITOR [Concomitant]
     Indication: BLOOD CHOLESTEROL INCREASED
     Dates: end: 20091208
  11. CRESTOR [Concomitant]
     Indication: BLOOD CHOLESTEROL INCREASED
     Dates: start: 20091208
  12. ASPIRIN [Concomitant]
     Indication: PRODUCT USED FOR UNKNOWN INDICATION
     Dates: end: 20090701
  13. ASPIRIN [Concomitant]
     Dates: start: 20090801, end: 20090901
  14. ASPIRIN [Concomitant]
     Dates: end: 20091201
  15. NEXIUM [Concomitant]
     Indication: DYSPEPSIA
     Dates: start: 20090801, end: 20090901
  16. NEXIUM [Concomitant]
     Dates: end: 20091201
  17. NEXIUM [Concomitant]
     Dates: end: 20090701

REACTIONS (1)
  - URTICARIA [None]
